FAERS Safety Report 6722725-5 (Version None)
Quarter: 2010Q2

REPORT INFORMATION
  Report Type: 
  Country: None (occurrence: None)
  Receive Date: 20100511
  Receipt Date: 20100427
  Transmission Date: 20101027
  Serious: Yes (Hospitalization)
  Sender: FDA-Public Use
  Company Number: 2010EU001242

PATIENT
  Age: 4 Year
  Sex: Female
  Weight: 21 kg

DRUGS (1)
  1. TACROLIMUS [Suspect]
     Indication: DERMATITIS ATOPIC
     Dosage: 1 DF, WEEKLY,
     Dates: start: 20061205, end: 20090601

REACTIONS (1)
  - WRIST FRACTURE [None]
